FAERS Safety Report 4570928-0 (Version None)
Quarter: 2005Q1

REPORT INFORMATION
  Report Type: 
  Country: None (occurrence: None)
  Receive Date: 20050204
  Receipt Date: 20041224
  Transmission Date: 20050727
  Serious: Yes (Hospitalization, Other)
  Sender: FDA-Public Use
  Company Number: JP-MERCK-0412USA03004

PATIENT
  Age: 13 Month
  Sex: Male
  Weight: 9 kg

DRUGS (8)
  1. PERIACTIN [Suspect]
     Indication: RHINORRHOEA
     Route: 048
     Dates: start: 20040916, end: 20041221
  2. ASVERIN [Suspect]
     Indication: ANTITUSSIVE THERAPY
     Route: 048
     Dates: start: 20040924, end: 20041221
  3. MUCODYNE [Concomitant]
     Indication: SPUTUM RETENTION
     Route: 048
     Dates: start: 20040916, end: 20041221
  4. MUCOSOLVAN [Concomitant]
     Indication: SPUTUM RETENTION
     Route: 048
     Dates: start: 20041007, end: 20041221
  5. POLARAMINE [Suspect]
     Indication: RHINORRHOEA
     Route: 048
     Dates: start: 20041118, end: 20041221
  6. THEO-DUR [Suspect]
     Indication: ASTHMA
     Route: 048
     Dates: start: 20040927, end: 20041221
  7. [THERAPY UNSPECIFIED] [Concomitant]
     Indication: ANAEMIA
     Route: 048
     Dates: start: 20040916
  8. HOKUNALIN [Concomitant]
     Indication: ANTITUSSIVE THERAPY
     Route: 061
     Dates: start: 20040916

REACTIONS (3)
  - DEPRESSED LEVEL OF CONSCIOUSNESS [None]
  - OVERDOSE [None]
  - SOMNOLENCE [None]
